FAERS Safety Report 5951063-3 (Version None)
Quarter: 2008Q4

REPORT INFORMATION
  Report Type: 
  Country: None (occurrence: None)
  Receive Date: 20081111
  Receipt Date: 20081111
  Transmission Date: 20090506
  Serious: No
  Sender: FDA-Public Use
  Company Number: None

PATIENT
  Age: 60 Year
  Sex: Male
  Weight: 104.1 kg

DRUGS (1)
  1. SITAGLIPTIN [Suspect]
     Indication: DIABETES MELLITUS
     Dosage: 100 MG EVERY DAY PO
     Route: 048
     Dates: start: 20080711

REACTIONS (1)
  - CONSTIPATION [None]
